FAERS Safety Report 21854487 (Version 1)
Quarter: 2023Q1

REPORT INFORMATION
  Report Type: Spontaneous
  Country: FR (occurrence: FR)
  Receive Date: 20230112
  Receipt Date: 20230112
  Transmission Date: 20230418
  Serious: Yes (Hospitalization)
  Sender: FDA-Public Use
  Company Number: None

PATIENT
  Age: 23 Year
  Sex: Male
  Weight: 78.5 kg

DRUGS (3)
  1. SILDENAFIL [Suspect]
     Active Substance: SILDENAFIL
     Indication: Product used for unknown indication
     Dosage: NP
     Dates: start: 20221210, end: 20221210
  2. BUTYROLACTONE [Suspect]
     Active Substance: BUTYROLACTONE
     Indication: Product used for unknown indication
     Dosage: NP
     Dates: start: 20221210, end: 20221210
  3. 3-CHLOROMETHCATHINONE [Suspect]
     Active Substance: 3-CHLOROMETHCATHINONE
     Indication: Product used for unknown indication
     Dosage: NP
     Dates: start: 20221210, end: 20221210

REACTIONS (2)
  - Coma [Recovered/Resolved]
  - Drug abuse [Recovered/Resolved]

NARRATIVE: CASE EVENT DATE: 20221210
